FAERS Safety Report 8195662-X (Version None)
Quarter: 2012Q1

REPORT INFORMATION
  Report Type: 
  Country: None (occurrence: None)
  Receive Date: 20120308
  Receipt Date: 20120227
  Transmission Date: 20120608
  Serious: Yes (Other)
  Sender: FDA-Public Use
  Company Number: US-ELI_LILLY_AND_COMPANY-US201202008526

PATIENT
  Age: 74 Year
  Sex: Male

DRUGS (2)
  1. CYMBALTA [Suspect]
     Indication: AGITATION
     Dosage: 80 MG, QD
  2. ASPIRIN [Concomitant]

REACTIONS (4)
  - DYSPHAGIA [None]
  - HAEMATOCHEZIA [None]
  - OFF LABEL USE [None]
  - ANAEMIA [None]
